FAERS Safety Report 7007970-6 (Version None)
Quarter: 2010Q3

REPORT INFORMATION
  Report Type: 
  Country: None (occurrence: None)
  Receive Date: 20100922
  Receipt Date: 20100913
  Transmission Date: 20110219
  Serious: Yes (Other)
  Sender: FDA-Public Use
  Company Number: US-ASTRAZENECA-2010SE43016

PATIENT
  Sex: Female

DRUGS (3)
  1. FASLODEX [Suspect]
     Indication: UTERINE CANCER
     Dosage: TWO INJECTIONS
     Route: 030
     Dates: start: 20100701
  2. FASLODEX [Suspect]
     Dosage: ONE INJECTION
     Route: 030
     Dates: start: 20100801
  3. PAIN MEDICATION [Concomitant]

REACTIONS (4)
  - DEEP VEIN THROMBOSIS [None]
  - KIDNEY INFECTION [None]
  - NAUSEA [None]
  - STENT PLACEMENT [None]
